FAERS Safety Report 15928302 (Version 4)
Quarter: 2019Q1

REPORT INFORMATION
  Report Type: Spontaneous
  Country: JP (occurrence: JP)
  Receive Date: 20190206
  Receipt Date: 20190313
  Transmission Date: 20190417
  Serious: Yes (Hospitalization)
  Sender: FDA-Public Use
  Company Number: JP-ROCHE-2260320

PATIENT
  Age: 44 Year
  Sex: Female

DRUGS (3)
  1. MEDICON (DEXTROMETHORPHAN HYDROBROMIDE) [Suspect]
     Active Substance: DEXTROMETHORPHAN HYDROBROMIDE
     Indication: ANTITUSSIVE THERAPY
     Route: 048
     Dates: start: 20190128
  2. XOFLUZA [Suspect]
     Active Substance: BALOXAVIR MARBOXIL
     Indication: INFLUENZA
     Route: 048
     Dates: start: 20190128, end: 20190128
  3. COCARL [Suspect]
     Active Substance: ACETAMINOPHEN
     Indication: ANTIPYRESIS
     Route: 048
     Dates: start: 20190128, end: 20190129

REACTIONS (2)
  - Asthenia [Recovering/Resolving]
  - Acute disseminated encephalomyelitis [Unknown]

NARRATIVE: CASE EVENT DATE: 20190129
